FAERS Safety Report 9236275 (Version 7)
Quarter: 2013Q4

REPORT INFORMATION
  Report Type: Spontaneous
  Country: US (occurrence: US)
  Receive Date: 20130417
  Receipt Date: 20131121
  Transmission Date: 20140711
  Serious: Yes (Hospitalization, Other)
  Sender: FDA-Public Use
  Company Number: US-009507513-1204USA01866

PATIENT
  Sex: Female
  Weight: 84.35 kg

DRUGS (9)
  1. FOSAMAX [Suspect]
     Indication: OSTEOPOROSIS
     Dosage: 10 MG, QAM
     Route: 048
     Dates: start: 19990120, end: 20000905
  2. FOSAMAX [Suspect]
     Indication: OSTEOPENIA
     Dosage: 70 MG, UNK
     Route: 048
     Dates: start: 20001216, end: 20061001
  3. FOSAMAX [Suspect]
     Dosage: 10 MG, QAM
     Route: 048
     Dates: start: 20000919, end: 20001215
  4. ALENDRONATE SODIUM [Suspect]
     Dosage: UNK
  5. CYMBALTA [Concomitant]
     Indication: FIBROMYALGIA
     Dosage: UNK
     Dates: start: 1998
  6. MIRAPEX [Concomitant]
     Indication: RESTLESS LEGS SYNDROME
     Dosage: UNK
     Dates: start: 1998
  7. OMEPRAZOLE [Concomitant]
     Indication: GASTROOESOPHAGEAL REFLUX DISEASE
     Dosage: UNK
     Dates: start: 1998
  8. CRESTOR [Concomitant]
     Indication: BLOOD CHOLESTEROL INCREASED
     Dosage: UNK
     Dates: start: 1998
  9. ZETIA [Concomitant]
     Indication: BLOOD CHOLESTEROL INCREASED
     Dosage: UNK
     Dates: start: 1998

REACTIONS (45)
  - Knee arthroplasty [Unknown]
  - Knee operation [Unknown]
  - Surgery [Unknown]
  - Osteonecrosis of jaw [Recovered/Resolved]
  - Abscess jaw [Unknown]
  - Menorrhagia [Unknown]
  - Skin papilloma [Unknown]
  - Jaw cyst [Unknown]
  - Tooth disorder [Unknown]
  - Exostosis [Unknown]
  - Dental caries [Unknown]
  - Oral disorder [Unknown]
  - Stomatitis [Not Recovered/Not Resolved]
  - Empyema [Unknown]
  - Periodontal operation [Unknown]
  - Oral surgery [Unknown]
  - Dental care [Unknown]
  - Biopsy bone [Unknown]
  - Periodontitis [Not Recovered/Not Resolved]
  - Traumatic occlusion [Unknown]
  - Tooth disorder [Unknown]
  - Gingival abscess [Recovering/Resolving]
  - Dental caries [Unknown]
  - Infection [Unknown]
  - Fibrosis [Unknown]
  - Endodontic procedure [Recovering/Resolving]
  - Dental necrosis [Recovering/Resolving]
  - Sinus disorder [Unknown]
  - Periodontal disease [Unknown]
  - Gingival recession [Unknown]
  - Tooth discolouration [Unknown]
  - Tooth fracture [Unknown]
  - Dental caries [Unknown]
  - Tooth abscess [Unknown]
  - Dry mouth [Unknown]
  - Irritable bowel syndrome [Unknown]
  - Osteomyelitis [Unknown]
  - Weight increased [Unknown]
  - Arthralgia [Unknown]
  - Arthralgia [Unknown]
  - Back pain [Not Recovered/Not Resolved]
  - Intervertebral disc degeneration [Unknown]
  - Restless legs syndrome [Unknown]
  - Osteoarthritis [Unknown]
  - Fall [Unknown]
